FAERS Safety Report 21436088 (Version 14)
Quarter: 2023Q4

REPORT INFORMATION
  Report Type: Spontaneous
  Country: US (occurrence: US)
  Receive Date: 20221010
  Receipt Date: 20231228
  Transmission Date: 20240109
  Serious: Yes (Other)
  Sender: FDA-Public Use
  Company Number: US-INCYTE CORPORATION-2022IN009497

PATIENT

DRUGS (14)
  1. JAKAFI [Suspect]
     Active Substance: RUXOLITINIB
     Indication: Myelofibrosis
     Dosage: 20 MILLIGRAM, BID
     Route: 048
     Dates: start: 20190805
  2. JAKAFI [Suspect]
     Active Substance: RUXOLITINIB
     Dosage: 20 MILLIGRAM, BID
     Route: 048
     Dates: start: 20190815
  3. JAKAFI [Suspect]
     Active Substance: RUXOLITINIB
     Dosage: 25 MILLIGRAM, QD
     Route: 048
     Dates: start: 20190821
  4. JAKAFI [Suspect]
     Active Substance: RUXOLITINIB
     Dosage: 25 MILLIGRAM, QD
     Route: 048
     Dates: start: 20190821
  5. JAKAFI [Suspect]
     Active Substance: RUXOLITINIB
     Dosage: 20 MILLIGRAM, BID (20 QAM, 20MG QPM)
     Route: 048
     Dates: start: 201908
  6. JAKAFI [Suspect]
     Active Substance: RUXOLITINIB
     Dosage: 20 MILLIGRAM, BID
     Route: 048
     Dates: start: 20190821
  7. JAKAFI [Suspect]
     Active Substance: RUXOLITINIB
     Dosage: 20 MILLIGRAM, BID
     Route: 048
     Dates: start: 20221019
  8. JAKAFI [Suspect]
     Active Substance: RUXOLITINIB
     Dosage: 20 MILLIGRAM, BID
     Route: 048
     Dates: start: 20190815, end: 202310
  9. JAKAFI [Suspect]
     Active Substance: RUXOLITINIB
     Dosage: 20 MILLIGRAM, BID
     Route: 048
     Dates: start: 20190815, end: 202310
  10. JAKAFI [Suspect]
     Active Substance: RUXOLITINIB
     Dosage: 20 MILLIGRAM, BID
     Route: 048
     Dates: start: 20190815
  11. HYDREA [Suspect]
     Active Substance: HYDROXYUREA
     Indication: Splenomegaly
     Dosage: 500 MILLIGRAM, QOD
     Route: 048
     Dates: start: 20221104
  12. HYDREA [Suspect]
     Active Substance: HYDROXYUREA
     Dosage: 500 MILLIGRAM, QD
     Route: 048
  13. BENTYL [Concomitant]
     Active Substance: DICYCLOMINE HYDROCHLORIDE
     Indication: Product used for unknown indication
     Route: 065
  14. MOMELOTINIB [Concomitant]
     Active Substance: MOMELOTINIB
     Indication: Product used for unknown indication
     Dosage: TOOK ONE DOSE
     Route: 065

REACTIONS (19)
  - Full blood count decreased [Recovering/Resolving]
  - Haemoglobin decreased [Unknown]
  - Myelofibrosis [Unknown]
  - Asthenia [Unknown]
  - Gait inability [Unknown]
  - Amnesia [Unknown]
  - Fatigue [Unknown]
  - Depression [Unknown]
  - Tooth disorder [Unknown]
  - Drug intolerance [Unknown]
  - Product availability issue [Unknown]
  - Visual impairment [Unknown]
  - Splenomegaly [Unknown]
  - Abdominal distension [Unknown]
  - Flatulence [Unknown]
  - Constipation [Unknown]
  - Cystitis [Recovered/Resolved]
  - Dyspnoea [Unknown]
  - Disease progression [Unknown]
